FAERS Safety Report 9698611 (Version 2)
Quarter: 2013Q4

REPORT INFORMATION
  Report Type: Spontaneous
  Country: US (occurrence: US)
  Receive Date: 20131120
  Receipt Date: 20131203
  Transmission Date: 20140711
  Serious: No
  Sender: FDA-Public Use
  Company Number: US-009507513-1311USA008563

PATIENT
  Age: 53 Year
  Sex: Female
  Weight: 106.58 kg

DRUGS (1)
  1. CLARITIN-D-12 [Suspect]
     Indication: ALLERGY TO ANIMAL
     Dosage: UNK, UNKNOWN
     Route: 048
     Dates: start: 20131011, end: 20131016

REACTIONS (3)
  - Aphagia [Recovered/Resolved]
  - Insomnia [Recovered/Resolved]
  - Underdose [Unknown]
